FAERS Safety Report 7939000-3 (Version None)
Quarter: 2011Q4

REPORT INFORMATION
  Report Type: 
  Country: None (occurrence: None)
  Receive Date: 20111124
  Receipt Date: 20111115
  Transmission Date: 20120403
  Serious: Yes (Other)
  Sender: FDA-Public Use
  Company Number: US-AMGEN-USASP2011036266

PATIENT
  Age: 31 Year
  Sex: Female

DRUGS (4)
  1. ENBREL [Suspect]
     Indication: ANKYLOSING SPONDYLITIS
     Dosage: 50 MG, PRN
     Dates: start: 20080501
  2. FOLIC [Concomitant]
     Dosage: UNK UNK, QD
     Route: 048
  3. PRENATAL VITAMINS                  /01549301/ [Concomitant]
     Dosage: UNK UNK, QD
     Route: 048
  4. ENBREL [Suspect]
     Dosage: 50 MG, QWK
     Dates: start: 20080501, end: 20110603

REACTIONS (5)
  - ARTHRALGIA [None]
  - OVARIAN CYST [None]
  - ARTHRITIS [None]
  - JOINT SWELLING [None]
  - ABDOMINAL PAIN [None]
